FAERS Safety Report 17476705 (Version 1)
Quarter: 2020Q1

REPORT INFORMATION
  Report Type: Report from Study
  Country: US (occurrence: US)
  Receive Date: 20200228
  Receipt Date: 20200228
  Transmission Date: 20200409
  Serious: Yes (Other)
  Sender: FDA-Public Use
  Company Number: US-JNJFOC-20191032211

PATIENT
  Age: 20 Year
  Sex: Female

DRUGS (3)
  1. EPIDIOLEX [Concomitant]
     Active Substance: CANNABIDIOL
  2. STELARA [Suspect]
     Active Substance: USTEKINUMAB
     Indication: PRODUCT USED FOR UNKNOWN INDICATION
     Route: 058
  3. PREDNISONE. [Concomitant]
     Active Substance: PREDNISONE

REACTIONS (2)
  - Ear infection [Unknown]
  - Seizure [Unknown]

NARRATIVE: CASE EVENT DATE: 2019
